FAERS Safety Report 7241324-2 (Version None)
Quarter: 2011Q1

REPORT INFORMATION
  Report Type: 
  Country: None (occurrence: None)
  Receive Date: 20110124
  Receipt Date: 20110111
  Transmission Date: 20110831
  Serious: Yes (Other)
  Sender: FDA-Public Use
  Company Number: US-ROCHE-753040

PATIENT
  Sex: Female
  Weight: 59 kg

DRUGS (16)
  1. PLAQUENIL [Concomitant]
     Dosage: INDICATION: HEART
  2. ACTEMRA [Suspect]
     Indication: RHEUMATOID ARTHRITIS
     Route: 042
     Dates: start: 20101220
  3. IMURAN [Concomitant]
  4. DARVOCET [Concomitant]
     Dosage: 10-100 EVERY 6 HOURS
  5. TORADOL [Concomitant]
     Dosage: FOR 5 DAYS
  6. ZITHROMAX [Suspect]
     Indication: BRONCHITIS
     Dosage: INDICATION: LUNG INFECTION
     Route: 065
     Dates: start: 20101230, end: 20101230
  7. LEVAQUIN [Concomitant]
     Dosage: FOR 7 DAYS
     Dates: start: 20110101, end: 20110108
  8. IBUPROFEN [Concomitant]
  9. VICODIN [Concomitant]
     Dosage: 5/500 MG AS NEEDED
  10. XANAX [Concomitant]
     Indication: ANTIDEPRESSANT THERAPY
     Dates: start: 20110101, end: 20110103
  11. LEVOTHYROXINE SODIUM [Concomitant]
     Dosage: INDICATION: THYROID
  12. TOPROL-XL [Concomitant]
  13. ASPIRIN [Concomitant]
     Dosage: BAYER (LOW DOSE ASPIRIN)
  14. ALBUTEROL [Concomitant]
  15. TRAMADOL [Concomitant]
  16. NEURONTIN [Concomitant]
     Dosage: 1-2 THRICE DAILY

REACTIONS (14)
  - ABDOMINAL PAIN UPPER [None]
  - BRONCHITIS [None]
  - PANIC ATTACK [None]
  - NIGHT SWEATS [None]
  - ERYTHEMA OF EYELID [None]
  - SPEECH DISORDER [None]
  - DIARRHOEA [None]
  - ANXIETY [None]
  - DYSPNOEA [None]
  - DYSPHONIA [None]
  - THROAT TIGHTNESS [None]
  - EYE IRRITATION [None]
  - NASOPHARYNGITIS [None]
  - HEART RATE INCREASED [None]
